FAERS Safety Report 23969852 (Version 3)
Quarter: 2024Q3

REPORT INFORMATION
  Report Type: Spontaneous
  Country: US (occurrence: US)
  Receive Date: 20240613
  Receipt Date: 20240830
  Transmission Date: 20241016
  Serious: Yes (Hospitalization, Other)
  Sender: JOHNSON AND JOHNSON
  Company Number: US-JNJFOC-20240614101

PATIENT
  Age: 92 Year
  Sex: Male
  Weight: 76.7 kg

DRUGS (18)
  1. ERLEADA [Suspect]
     Active Substance: APALUTAMIDE
     Indication: Prostate cancer
     Route: 048
     Dates: start: 20240321
  2. ERLEADA [Suspect]
     Active Substance: APALUTAMIDE
     Route: 048
     Dates: start: 20240219
  3. ASPIRIN [Concomitant]
     Active Substance: ASPIRIN
     Indication: Dizziness
     Dates: start: 200001
  4. MEDROXYPROGESTERONE [Concomitant]
     Active Substance: MEDROXYPROGESTERONE
     Indication: Dizziness
     Route: 048
     Dates: start: 200001
  5. MEDROXYPROGESTERONE [Concomitant]
     Active Substance: MEDROXYPROGESTERONE
     Indication: Hot flush
     Route: 048
     Dates: start: 20230918, end: 20240202
  6. MECLIZINE HYDROCHLORIDE [Concomitant]
     Active Substance: MECLIZINE HYDROCHLORIDE
     Indication: Prostate cancer
     Dates: start: 200001
  7. FINASTERIDE [Concomitant]
     Active Substance: FINASTERIDE
  8. FINASTERIDE [Concomitant]
     Active Substance: FINASTERIDE
     Dates: start: 20230821, end: 20240207
  9. PAXLOVID [Concomitant]
     Active Substance: NIRMATRELVIR\RITONAVIR
  10. LEUPROLIDE ACETATE [Concomitant]
     Active Substance: ISOPROPYL ALCOHOL\LEUPROLIDE ACETATE
  11. ASCORBIC ACID [Concomitant]
     Active Substance: ASCORBIC ACID
  12. CHOLECALCIFEROL [Concomitant]
     Active Substance: CHOLECALCIFEROL
  13. LACTOBACILLUS ACIDOPHILUS [Concomitant]
     Active Substance: LACTOBACILLUS ACIDOPHILUS
  14. MULTI VITAMIN, IRON + FLUORIDE SUPPLEMENTAL [Concomitant]
     Dosage: 400 MCG
  15. NIRMATRELVIR [Concomitant]
     Active Substance: NIRMATRELVIR
     Dates: start: 20221216
  16. PROBIOTICS NOS [Concomitant]
     Active Substance: PROBIOTICS NOS
     Route: 048
  17. VITAMIN D3 [Concomitant]
     Active Substance: CHOLECALCIFEROL
     Route: 048
  18. RITONAVIR [Concomitant]
     Active Substance: RITONAVIR
     Dates: start: 20221216

REACTIONS (3)
  - Vertigo [Unknown]
  - Metastases to lymph nodes [Unknown]
  - Product dose omission issue [Unknown]
